FAERS Safety Report 22141940 (Version 1)
Quarter: 2023Q1

REPORT INFORMATION
  Report Type: Spontaneous
  Country: CA (occurrence: CA)
  Receive Date: 20230327
  Receipt Date: 20230327
  Transmission Date: 20230417
  Serious: Yes (Other)
  Sender: FDA-Public Use
  Company Number: CA-002147023-NVSC2023CA064334

PATIENT
  Age: 2 Day
  Sex: Male
  Weight: 3 kg

DRUGS (5)
  1. VANCOMYCIN HYDROCHLORIDE [Suspect]
     Active Substance: VANCOMYCIN HYDROCHLORIDE
     Indication: Endocarditis enterococcal
     Dosage: 5 MG, QD
     Route: 065
  2. VANCOMYCIN HYDROCHLORIDE [Suspect]
     Active Substance: VANCOMYCIN HYDROCHLORIDE
     Indication: Congenital hydrocephalus
     Dosage: 10 MG, QD
     Route: 065
  3. VANCOMYCIN HYDROCHLORIDE [Suspect]
     Active Substance: VANCOMYCIN HYDROCHLORIDE
     Dosage: 18 MG/KG, BID
     Route: 042
  4. GENTAMICIN [Suspect]
     Active Substance: GENTAMICIN
     Indication: Congenital hydrocephalus
     Dosage: 2.5 MG/KG, BID
     Route: 042
  5. CEFTAZIDIME [Suspect]
     Active Substance: CEFTAZIDIME
     Indication: Congenital hydrocephalus
     Dosage: 50 MG/KG, TID (FORMULATION: POWDER FOR SOLUTION)
     Route: 042

REACTIONS (3)
  - Eosinophilia [Recovered/Resolved]
  - CNS ventriculitis [Recovered/Resolved]
  - Pleocytosis [Recovered/Resolved]
